FAERS Safety Report 19199215 (Version 3)
Quarter: 2022Q1

REPORT INFORMATION
  Report Type: Spontaneous
  Country: GB (occurrence: GB)
  Receive Date: 20210429
  Receipt Date: 20220114
  Transmission Date: 20220423
  Serious: Yes (Death, Other)
  Sender: FDA-Public Use
  Company Number: GB-MYLANLABS-2021M1023223

PATIENT
  Age: 40 Year
  Sex: Male

DRUGS (12)
  1. IBUPROFEN [Suspect]
     Active Substance: IBUPROFEN
     Indication: Product used for unknown indication
     Dosage: UNK
     Route: 065
  2. ACETAMINOPHEN [Suspect]
     Active Substance: ACETAMINOPHEN
     Indication: Product used for unknown indication
     Dosage: UNK
     Route: 065
  3. CLOZARIL [Suspect]
     Active Substance: CLOZAPINE
     Indication: Schizophrenia
     Dosage: UNK
     Route: 048
     Dates: start: 20010701, end: 20210413
  4. AMISULPRIDE [Concomitant]
     Active Substance: AMISULPRIDE
     Indication: Schizophrenia
     Dosage: 400 MILLIGRAM, ONCE A DAY AT NIGHT
     Route: 048
     Dates: end: 20210413
  5. LORAZEPAM [Concomitant]
     Active Substance: LORAZEPAM
     Indication: Anxiety
     Dosage: 1 MILLIGRAM, TWO TIMES A DAY
     Route: 048
     Dates: end: 20210413
  6. MIRTAZAPINE [Concomitant]
     Active Substance: MIRTAZAPINE
     Indication: Depressed mood
     Dosage: 15 MILLIGRAM, ONCE A DAY
     Route: 048
     Dates: end: 20210413
  7. MIRTAZAPINE [Concomitant]
     Active Substance: MIRTAZAPINE
     Indication: Anxiety
  8. PIRENZEPINE [Concomitant]
     Active Substance: PIRENZEPINE
     Indication: Extrapyramidal disorder
     Dosage: 50 MILLIGRAM, ONCE A DAY AT NIGHT
     Route: 048
     Dates: end: 20210413
  9. PREGABALIN [Concomitant]
     Active Substance: PREGABALIN
     Indication: Anxiety
     Dosage: 600 MILLIGRAM, ONCE A DAY
     Route: 048
     Dates: end: 20210413
  10. PREGABALIN [Concomitant]
     Active Substance: PREGABALIN
     Indication: Depressed mood
  11. SERTRALINE [Concomitant]
     Active Substance: SERTRALINE HYDROCHLORIDE
     Indication: Depressed mood
     Dosage: 200 MILLIGRAM, ONCE A DAY
     Route: 048
     Dates: end: 20210413
  12. SERTRALINE [Concomitant]
     Active Substance: SERTRALINE HYDROCHLORIDE
     Indication: Anxiety

REACTIONS (2)
  - Death [Fatal]
  - Overdose [Fatal]

NARRATIVE: CASE EVENT DATE: 20210413
